FAERS Safety Report 5672220-X (Version None)
Quarter: 2008Q1

REPORT INFORMATION
  Report Type: 
  Country: None (occurrence: None)
  Receive Date: 20080319
  Receipt Date: 20080305
  Transmission Date: 20080703
  Serious: Yes (Hospitalization, Other)
  Sender: FDA-Public Use
  Company Number: JP-ELI_LILLY_AND_COMPANY-JP200705006793

PATIENT
  Age: 69 Year
  Sex: Male
  Weight: 69.6 kg

DRUGS (7)
  1. HUMULIN 70/30 [Suspect]
     Dosage: 14 U, EACH MORNING
     Route: 058
     Dates: start: 20010907, end: 20011106
  2. HUMULIN 70/30 [Suspect]
     Dosage: 8 U, EACH EVENING
     Route: 058
     Dates: start: 20010907, end: 20011106
  3. HUMALOG [Suspect]
     Dosage: UNK, 3/D
     Route: 058
     Dates: start: 20011106
  4. HUMACART NPH [Suspect]
     Dosage: UNK, DAILY (1/D)
     Route: 058
     Dates: start: 20011106
  5. ADALAT [Concomitant]
     Dosage: 20 MG, 2/D
     Route: 048
  6. PANALDINE [Concomitant]
     Dosage: 100 MG, 2/D
     Route: 048
  7. ENALAPRIL MALEATE [Concomitant]
     Dosage: 5 MG, DAILY (1/D)
     Route: 048

REACTIONS (3)
  - ANTI-INSULIN ANTIBODY INCREASED [None]
  - HYPERGLYCAEMIA [None]
  - IMPAIRED INSULIN SECRETION [None]
